FAERS Safety Report 12754980 (Version 1)
Quarter: 2016Q3

REPORT INFORMATION
  Report Type: Spontaneous
  Country: US (occurrence: US)
  Receive Date: 20160916
  Receipt Date: 20160916
  Transmission Date: 20161109
  Serious: No
  Sender: FDA-Public Use
  Company Number: US-LOREAL USA PRODUCTS, INC.-2016LOR00007

PATIENT
  Age: 71 Year
  Sex: Female
  Weight: 63.49 kg

DRUGS (2)
  1. LA ROCHE POSAY LAB. DERMATOLOGIQUE ANTHELIOS SX DAILY MOISTURIZING SUNSCREEN SPF 15 [Suspect]
     Active Substance: AVOBENZONE\ECAMSULE\OCTOCRYLENE
     Dosage: UNK
     Dates: start: 201606
  2. COCOA BUTTER FORMULA WITH VITAMIN E [Concomitant]

REACTIONS (1)
  - Dysgeusia [Recovering/Resolving]

NARRATIVE: CASE EVENT DATE: 201606
